FAERS Safety Report 18745960 (Version 1)
Quarter: 2021Q1

REPORT INFORMATION
  Report Type: Spontaneous
  Country: US (occurrence: US)
  Receive Date: 20210115
  Receipt Date: 20210115
  Transmission Date: 20210419
  Serious: Yes (Other)
  Sender: FDA-Public Use
  Company Number: None

PATIENT
  Age: 56 Year
  Sex: Male

DRUGS (7)
  1. ROSUVASTATIN 10MG [Concomitant]
     Active Substance: ROSUVASTATIN
  2. METFORMIN 500MG [Concomitant]
     Active Substance: METFORMIN HYDROCHLORIDE
  3. LISINOPRIL 10MG [Concomitant]
     Active Substance: LISINOPRIL
  4. DOXYCYCLINE 100 [Concomitant]
     Active Substance: DOXYCYCLINE
  5. GABAPENTIN 100MG [Concomitant]
     Active Substance: GABAPENTIN
  6. AMOXICILLIN 500MG [Concomitant]
     Active Substance: AMOXICILLIN
  7. EPCLUSA [Suspect]
     Active Substance: SOFOSBUVIR\VELPATASVIR
     Indication: HEPATITIS C
     Route: 048
     Dates: start: 20201126

REACTIONS (1)
  - Arthralgia [None]

NARRATIVE: CASE EVENT DATE: 20210114
